FAERS Safety Report 5943889-7 (Version None)
Quarter: 2008Q4

REPORT INFORMATION
  Report Type: 
  Country: None (occurrence: None)
  Receive Date: 20081104
  Receipt Date: 20081020
  Transmission Date: 20090506
  Serious: Yes (Life-Threatening, Other)
  Sender: FDA-Public Use
  Company Number: 2008100042

PATIENT
  Age: 51 Year
  Sex: Male
  Weight: 85.3216 kg

DRUGS (12)
  1. SOMA [Suspect]
     Dosage: 1050 MG (350 MG, 3 IN 1 D), ORAL
     Route: 048
     Dates: start: 20080520
  2. PEGASYS [Suspect]
     Indication: HEPATITIS C
     Dosage: 25/7143 MCG (180 MCG, 1 IN 1 WK), SUBCUTANEOUS
     Route: 058
     Dates: start: 20080204
  3. COPEGUS [Suspect]
     Indication: HEPATITIS C
     Dosage: 600 MG (600 MG, AM), ORAL
     Route: 048
     Dates: start: 20080204
  4. LUNESTA [Suspect]
     Dosage: 3 MG (3 MG, 1 IN 1 D)
     Dates: start: 20071107, end: 20080101
  5. TRAZODONE HCL [Suspect]
     Dosage: 100 MG (100 MG, 1 IN 1 D)
     Dates: start: 20070829, end: 20070927
  6. XANAX [Concomitant]
  7. FLEXERIL [Concomitant]
  8. WELLBUTRIN XL [Concomitant]
  9. PHENERGAN HCL [Concomitant]
  10. ZOLOFT [Concomitant]
  11. DARVOCET [Concomitant]
  12. VITAMIN B-12 [Concomitant]

REACTIONS (5)
  - DEPRESSION [None]
  - MULTIPLE DRUG OVERDOSE INTENTIONAL [None]
  - PAIN [None]
  - REFUSAL OF TREATMENT BY PATIENT [None]
  - SUICIDE ATTEMPT [None]
